FAERS Safety Report 26059095 (Version 2)
Quarter: 2025Q4

REPORT INFORMATION
  Report Type: Spontaneous
  Country: TR (occurrence: TR)
  Receive Date: 20251118
  Receipt Date: 20251121
  Transmission Date: 20260119
  Serious: Yes (Other)
  Sender: NOVARTIS
  Company Number: TR-002147023-NVSC2025TR177402

PATIENT
  Age: 80 Year
  Sex: Female

DRUGS (2)
  1. AFINITOR [Suspect]
     Active Substance: EVEROLIMUS
     Indication: Product used for unknown indication
     Dosage: UNK, (AT THE ENDOF THREE YEARS (TEMPORARILY INTERRUPTED FOR LESS THAN 10 DAYS)
     Route: 065
     Dates: start: 201901
  2. EXEMESTANE [Suspect]
     Active Substance: EXEMESTANE
     Indication: Product used for unknown indication
     Dosage: UNK, (OTHER COMPANY PRODUCT, AT THE END OF THREE YEARS (TEMPORARILY INTERRUPTED FOR LESS THAN 10 DAY
     Route: 065
     Dates: start: 201901

REACTIONS (3)
  - Malignant neoplasm progression [Unknown]
  - Neutropenia [Unknown]
  - Mucosal inflammation [Unknown]

NARRATIVE: CASE EVENT DATE: 20220701
